FAERS Safety Report 5387661-8 (Version None)
Quarter: 2007Q3

REPORT INFORMATION
  Report Type: 
  Country: None (occurrence: None)
  Receive Date: 20070716
  Receipt Date: 20070713
  Transmission Date: 20080115
  Serious: Yes (Hospitalization)
  Sender: FDA-Public Use
  Company Number: GB-BRISTOL-MYERS SQUIBB COMPANY-13845045

PATIENT
  Age: 54 Year
  Sex: Female

DRUGS (7)
  1. CISPLATIN [Suspect]
     Indication: GASTROOESOPHAGEAL CANCER
     Route: 041
     Dates: start: 20060413, end: 20060413
  2. FLUOROURACIL [Suspect]
     Indication: GASTROOESOPHAGEAL CANCER
     Route: 041
     Dates: start: 20060413, end: 20060418
  3. LOPERAMIDE HCL [Concomitant]
     Indication: DIARRHOEA
     Route: 048
     Dates: start: 20060420
  4. CITALOPRAM HYDROBROMIDE [Concomitant]
     Indication: DEPRESSION
     Route: 048
     Dates: start: 20050601
  5. LANSOPRAZOLE [Concomitant]
     Indication: ANTACID THERAPY
     Route: 048
     Dates: start: 20060101
  6. OLANZAPINE [Concomitant]
     Indication: DEPRESSION
     Route: 048
     Dates: start: 20060601
  7. CYCLIZINE [Concomitant]
     Indication: ANTIEMETIC SUPPORTIVE CARE
     Route: 048
     Dates: start: 20060421, end: 20060423

REACTIONS (2)
  - ABDOMINAL PAIN [None]
  - DIARRHOEA [None]
